FAERS Safety Report 17180590 (Version 1)
Quarter: 2019Q4

REPORT INFORMATION
  Report Type: Spontaneous
  Country: SE (occurrence: SE)
  Receive Date: 20191219
  Receipt Date: 20191219
  Transmission Date: 20200122
  Serious: Yes (Hospitalization)
  Sender: FDA-Public Use
  Company Number: SE-PFIZER INC-2019542769

PATIENT
  Age: 18 Year
  Sex: Male

DRUGS (2)
  1. SERTRALINE HCL [Suspect]
     Active Substance: SERTRALINE HYDROCHLORIDE
     Dosage: 500 MG, UNK (10 TABLETS OF 50 MG)
     Dates: start: 20180427, end: 20180427
  2. PROPAVAN [Suspect]
     Active Substance: PROPIOMAZINE
     Dosage: 750 MG, UNK (30 TABLETS PER 25 MG)
     Route: 048
     Dates: start: 20180427, end: 20180427

REACTIONS (3)
  - Tachycardia [Unknown]
  - Intentional overdose [Unknown]
  - Intentional self-injury [Unknown]

NARRATIVE: CASE EVENT DATE: 20180427
